FAERS Safety Report 17508796 (Version 1)
Quarter: 2020Q1

REPORT INFORMATION
  Report Type: Spontaneous
  Country: US (occurrence: US)
  Receive Date: 20200225
  Receipt Date: 20200225
  Transmission Date: 20200409
  Serious: Yes (Hospitalization)
  Sender: FDA-Public Use
  Company Number: None

PATIENT
  Age: 65 Year
  Sex: Female

DRUGS (13)
  1. OPSUMIT [Suspect]
     Active Substance: MACITENTAN
     Indication: PULMONARY ARTERIAL HYPERTENSION
     Route: 048
     Dates: start: 201807
  2. SILEDNAFIL [Concomitant]
  3. DICLOFENAC TOP GEL [Concomitant]
  4. FLONASE [Concomitant]
     Active Substance: FLUTICASONE PROPIONATE
  5. GLIPIZIDE. [Concomitant]
     Active Substance: GLIPIZIDE
  6. HUMIRA [Concomitant]
     Active Substance: ADALIMUMAB
  7. AZATHIOPRINE. [Concomitant]
     Active Substance: AZATHIOPRINE
  8. OMEPRAZOLE. [Concomitant]
     Active Substance: OMEPRAZOLE
  9. ASPIRIN. [Concomitant]
     Active Substance: ASPIRIN
  10. SIMVASTATIN. [Concomitant]
     Active Substance: SIMVASTATIN
  11. TYLENOL [Concomitant]
     Active Substance: ACETAMINOPHEN
  12. METFORMIN [Concomitant]
     Active Substance: METFORMIN HYDROCHLORIDE
  13. CALCIUM CARBONATE-VIT D3 [Concomitant]

REACTIONS (9)
  - Contusion [None]
  - Interstitial lung disease [None]
  - Chills [None]
  - Condition aggravated [None]
  - Respiratory failure [None]
  - Myalgia [None]
  - Dyspnoea [None]
  - Pain [None]
  - Sepsis [None]

NARRATIVE: CASE EVENT DATE: 20200208
